FAERS Safety Report 8469838 (Version 2)
Quarter: 2015Q1

REPORT INFORMATION
  Report Type: Spontaneous
  Country: US (occurrence: US)
  Receive Date: 20120321
  Receipt Date: 20150310
  Transmission Date: 20150721
  Serious: Yes (Other)
  Sender: FDA-Public Use
  Company Number: US-ROCHE-1048458

PATIENT
  Age: 60 Year
  Sex: Female

DRUGS (8)
  1. BONIVA [Suspect]
     Active Substance: IBANDRONATE SODIUM
     Indication: OSTEOPOROSIS
     Route: 065
     Dates: start: 200607, end: 200706
  2. BONIVA [Suspect]
     Active Substance: IBANDRONATE SODIUM
     Indication: OSTEOPENIA
  3. ALENDRONATE [Suspect]
     Active Substance: ALENDRONATE SODIUM
     Indication: OSTEOPENIA
     Route: 065
  4. FOSAMAX [Suspect]
     Active Substance: ALENDRONATE SODIUM
     Route: 065
     Dates: start: 200708, end: 200801
  5. FOSAMAX [Suspect]
     Active Substance: ALENDRONATE SODIUM
     Indication: OSTEOPENIA
     Route: 065
     Dates: end: 2007
  6. LANSOPRAZOLE. [Concomitant]
     Active Substance: LANSOPRAZOLE
     Route: 065
     Dates: start: 201006, end: 201109
  7. FOSAMAX [Suspect]
     Active Substance: ALENDRONATE SODIUM
     Indication: OSTEOPOROSIS
     Route: 065
     Dates: start: 1999, end: 2006
  8. AVANDIA [Concomitant]
     Active Substance: ROSIGLITAZONE MALEATE
     Route: 065
     Dates: start: 2001, end: 2009

REACTIONS (8)
  - Femur fracture [Unknown]
  - Anxiety [Unknown]
  - Low turnover osteopathy [Unknown]
  - Emotional distress [Unknown]
  - Foot fracture [Unknown]
  - Femur fracture [Unknown]
  - Wrist fracture [Unknown]
  - Patella fracture [Unknown]

NARRATIVE: CASE EVENT DATE: 20070523
